FAERS Safety Report 17225761 (Version 2)
Quarter: 2020Q1

REPORT INFORMATION
  Report Type: Spontaneous
  Country: US (occurrence: US)
  Receive Date: 20200102
  Receipt Date: 20200218
  Transmission Date: 20200409
  Serious: No
  Sender: FDA-Public Use
  Company Number: US-JNJFOC-20191211311

PATIENT
  Sex: Male

DRUGS (3)
  1. ERDAFITINIB. [Suspect]
     Active Substance: ERDAFITINIB
     Indication: PRODUCT USED FOR UNKNOWN INDICATION
     Route: 048
  2. ERDAFITINIB. [Suspect]
     Active Substance: ERDAFITINIB
     Route: 048
  3. ERDAFITINIB. [Suspect]
     Active Substance: ERDAFITINIB
     Route: 048

REACTIONS (2)
  - Drug intolerance [Recovered/Resolved]
  - Mouth ulceration [Recovering/Resolving]
